FAERS Safety Report 5578136-1 (Version None)
Quarter: 2007Q4

REPORT INFORMATION
  Report Type: 
  Country: None (occurrence: None)
  Receive Date: 20071231
  Receipt Date: 20071226
  Transmission Date: 20080405
  Serious: Yes (Hospitalization, Other)
  Sender: FDA-Public Use
  Company Number: US-BRISTOL-MYERS SQUIBB COMPANY-14025969

PATIENT
  Age: 89 Year
  Sex: Female

DRUGS (14)
  1. BLINDED: APIXABAN [Suspect]
     Indication: THROMBOSIS PROPHYLAXIS
     Route: 048
  2. WARFARIN SODIUM [Suspect]
     Indication: THROMBOSIS PROPHYLAXIS
     Route: 048
  3. BLINDED: PLACEBO [Suspect]
     Indication: THROMBOSIS PROPHYLAXIS
     Route: 048
  4. VITAMIN E [Concomitant]
  5. M.V.I. [Concomitant]
  6. MAG-OX [Concomitant]
  7. ASPIRIN [Concomitant]
  8. ZOCOR [Concomitant]
  9. COUMADIN [Concomitant]
     Dosage: 2.5 MG MON-WEDS-FRI;5 MG TUES-THURS-SAT-SUN
  10. FISH OIL [Concomitant]
  11. COLACE [Concomitant]
  12. LORTAB [Concomitant]
     Dosage: 5/500 AS NECESSARY
  13. TOPRAL [Concomitant]
  14. PLAVIX [Concomitant]

REACTIONS (3)
  - DUODENAL ULCER HAEMORRHAGE [None]
  - MEDICATION ERROR [None]
  - SYNCOPE [None]
